FAERS Safety Report 9062336 (Version 2)
Quarter: 2013Q1

REPORT INFORMATION
  Report Type: Spontaneous
  Country: US (occurrence: US)
  Receive Date: 20130129
  Receipt Date: 20130304
  Transmission Date: 20140127
  Serious: Yes (Other)
  Sender: FDA-Public Use
  Company Number: PHEH2013US002303

PATIENT
  Sex: Female

DRUGS (2)
  1. GILENYA [Suspect]
     Indication: MULTIPLE SCLEROSIS
     Dosage: 0.5 MG, QD
     Route: 048
     Dates: start: 20120402, end: 20121016
  2. ANTIPSYCHOTICS [Concomitant]

REACTIONS (4)
  - Cardiac disorder [Unknown]
  - Arrhythmia [Recovered/Resolved]
  - Palpitations [Recovered/Resolved]
  - Ventricular extrasystoles [Recovered/Resolved]
